FAERS Safety Report 8812700 (Version 1)
Quarter: 2012Q4

REPORT INFORMATION
  Report Type: Report from Study
  Country: UG (occurrence: UG)
  Receive Date: 20120927
  Receipt Date: 20120927
  Transmission Date: 20130627
  Serious: Yes (Life-Threatening, Hospitalization)
  Sender: FDA-Public Use
  Company Number: UG-ABBOTT-11P-165-0838315-00

PATIENT
  Age: 32 Year
  Sex: Male

DRUGS (3)
  1. ALUVIA TABLETS [Suspect]
     Indication: HIV INFECTION
     Route: 048
     Dates: start: 20110331, end: 20110721
  2. ASPEN COTRIMAZOLE [Concomitant]
     Indication: PRODUCT USED FOR UNKNOWN INDICATION
     Dates: start: 20051010, end: 20110721
  3. RALTEGRAVIR [Concomitant]
     Indication: HIV INFECTION
     Route: 048
     Dates: start: 20110331, end: 20110721

REACTIONS (8)
  - Hepatitis B [Recovered/Resolved]
  - Pyrexia [Not Recovered/Not Resolved]
  - Headache [Not Recovered/Not Resolved]
  - Vomiting [Not Recovered/Not Resolved]
  - Hepatitis B [Recovered/Resolved]
  - Thrombocytopenia [Recovered/Resolved]
  - Drug-induced liver injury [Recovered/Resolved]
  - Immune reconstitution inflammatory syndrome [Recovered/Resolved]
